FAERS Safety Report 9275997 (Version 1)
Quarter: 2012Q4

REPORT INFORMATION
  Report Type: Spontaneous
  Country: TW (occurrence: None)
  Receive Date: 20121109
  Receipt Date: 20121109
  Transmission Date: 20130627
  Serious: Yes (Death)
  Sender: FDA-Public Use
  Company Number: 2012S1000144

PATIENT
  Age: 66 Year
  Sex: Male

DRUGS (4)
  1. CUBICIN [Suspect]
     Indication: STAPHYLOCOCCAL INFECTION
     Route: 042
  2. CUBICIN [Suspect]
     Indication: STAPHYLOCOCCAL INFECTION
     Route: 042
  3. VANCOMYCIN [Concomitant]
  4. TEICOPLANIN [Concomitant]

REACTIONS (4)
  - Systemic candida [None]
  - Septic shock [None]
  - Multi-organ failure [None]
  - Treatment failure [None]
